FAERS Safety Report 4932298-5 (Version None)
Quarter: 2006Q1

REPORT INFORMATION
  Report Type: 
  Country: None (occurrence: None)
  Receive Date: 20060228
  Receipt Date: 20060203
  Transmission Date: 20060701
  Serious: Yes (Other)
  Sender: FDA-Public Use
  Company Number: CH200602000619

PATIENT
  Age: 32 Year
  Sex: Female

DRUGS (1)
  1. FLUOXETINE HCL [Suspect]
     Indication: DEPRESSION
     Dosage: 10 MG, DAILY (1/D), ORAL
     Route: 048
     Dates: end: 20051115

REACTIONS (2)
  - ALCOHOL USE [None]
  - DRUG EXPOSURE DURING PREGNANCY [None]
